FAERS Safety Report 7002341-0 (Version None)
Quarter: 2010Q3

REPORT INFORMATION
  Report Type: 
  Country: None (occurrence: None)
  Receive Date: 20100920
  Receipt Date: 20100701
  Transmission Date: 20110219
  Serious: No
  Sender: FDA-Public Use
  Company Number: US-ASTRAZENECA-2007UW06150

PATIENT
  Age: 66 Year
  Sex: Female
  Weight: 111.6 kg

DRUGS (33)
  1. SEROQUEL [Suspect]
     Indication: SCHIZOPHRENIA
     Dosage: 25 MG,50 MG
     Route: 048
     Dates: start: 19981021
  2. SEROQUEL [Suspect]
     Indication: DEPRESSION
     Dosage: 25 MG,50 MG
     Route: 048
     Dates: start: 19981021
  3. SEROQUEL [Suspect]
     Indication: DELUSION
     Dosage: 25 MG,50 MG
     Route: 048
     Dates: start: 19981021
  4. SEROQUEL [Suspect]
     Indication: PARANOIA
     Dosage: 25 MG,50 MG
     Route: 048
     Dates: start: 19981021
  5. SEROQUEL [Suspect]
     Indication: PERSONALITY DISORDER
     Dosage: 25 MG,50 MG
     Route: 048
     Dates: start: 19981021
  6. SEROQUEL [Suspect]
     Indication: ANXIETY
     Dosage: 25 MG,50 MG
     Route: 048
     Dates: start: 19981021
  7. SEROQUEL [Suspect]
     Dosage: 25MG-75MG
     Route: 048
     Dates: start: 19990101, end: 20000101
  8. SEROQUEL [Suspect]
     Dosage: 25MG-75MG
     Route: 048
     Dates: start: 19990101, end: 20000101
  9. SEROQUEL [Suspect]
     Dosage: 25MG-75MG
     Route: 048
     Dates: start: 19990101, end: 20000101
  10. SEROQUEL [Suspect]
     Dosage: 25MG-75MG
     Route: 048
     Dates: start: 19990101, end: 20000101
  11. SEROQUEL [Suspect]
     Dosage: 25MG-75MG
     Route: 048
     Dates: start: 19990101, end: 20000101
  12. SEROQUEL [Suspect]
     Dosage: 25MG-75MG
     Route: 048
     Dates: start: 19990101, end: 20000101
  13. SEROQUEL [Suspect]
     Dosage: 25 MG TO 100 MG
     Route: 048
     Dates: start: 20010101, end: 20070911
  14. SEROQUEL [Suspect]
     Dosage: 25 MG TO 100 MG
     Route: 048
     Dates: start: 20010101, end: 20070911
  15. SEROQUEL [Suspect]
     Dosage: 25 MG TO 100 MG
     Route: 048
     Dates: start: 20010101, end: 20070911
  16. SEROQUEL [Suspect]
     Dosage: 25 MG TO 100 MG
     Route: 048
     Dates: start: 20010101, end: 20070911
  17. SEROQUEL [Suspect]
     Dosage: 25 MG TO 100 MG
     Route: 048
     Dates: start: 20010101, end: 20070911
  18. SEROQUEL [Suspect]
     Dosage: 25 MG TO 100 MG
     Route: 048
     Dates: start: 20010101, end: 20070911
  19. XANAX [Concomitant]
     Indication: ANXIETY DISORDER
     Dosage: 1 MG - 3 MG
     Route: 048
     Dates: start: 19900903
  20. LEXAPRO [Concomitant]
     Indication: DEPRESSION
     Dosage: 15 - 20 MG
     Route: 048
     Dates: start: 20040506
  21. DOXEPIN HCL [Concomitant]
     Indication: DEPRESSION
     Dosage: 20 MG -100 MG
     Route: 048
     Dates: start: 19991016
  22. ATARAX [Concomitant]
     Indication: PRURITUS
     Dosage: 25 MG EVERY FOUR HOURS AS REQUIRED
     Route: 048
     Dates: start: 19991016
  23. PRILOSEC [Concomitant]
     Route: 048
     Dates: start: 19961108
  24. LASIX [Concomitant]
     Route: 048
     Dates: start: 19991016
  25. CLARITIN [Concomitant]
     Indication: ALLERGIC SINUSITIS
     Route: 048
     Dates: start: 19961108
  26. PREMARIN [Concomitant]
     Dosage: 0.3 MG - 0.625 MG
     Route: 048
     Dates: start: 19961108
  27. ASPIRIN [Concomitant]
     Route: 048
     Dates: start: 19991016
  28. SYNTHROID [Concomitant]
     Dosage: 0.1 - 0.15 MG
     Route: 048
     Dates: start: 19961108
  29. DETROL [Concomitant]
     Indication: URINARY INCONTINENCE
     Route: 048
     Dates: start: 20020307
  30. VITAMIN B-12 [Concomitant]
     Dosage: 1 CC INTRAMUSCULAR MONTHLY
     Route: 030
     Dates: start: 19961108
  31. GLUCOTROL XL [Concomitant]
     Route: 048
     Dates: start: 20040506
  32. RISPERDAL [Concomitant]
     Indication: ANXIETY
     Dates: start: 19960101, end: 19960101
  33. ZYPREXA [Concomitant]
     Indication: ANXIETY
     Dosage: 2.5MG TO 5 MG
     Dates: start: 19970721, end: 19981008

REACTIONS (3)
  - BRONCHITIS [None]
  - DYSPNOEA [None]
  - TYPE 2 DIABETES MELLITUS [None]
